FAERS Safety Report 6129674-4 (Version None)
Quarter: 2009Q1

REPORT INFORMATION
  Report Type: 
  Country: None (occurrence: None)
  Receive Date: 20090320
  Receipt Date: 20090304
  Transmission Date: 20090719
  Serious: Yes (Death, Other)
  Sender: FDA-Public Use
  Company Number: 2009EK000016

PATIENT

DRUGS (3)
  1. RETEPLASE (RETEPLASE, RECOMBINANT) [Suspect]
     Indication: MYOCARDIAL INFARCTION
  2. ABCIXMIAB (ABCIXMIAB) [Suspect]
     Indication: MYOCARDIAL INFARCTION
  3. HEPARIN [Suspect]
     Indication: MYOCARDIAL INFARCTION

REACTIONS (2)
  - MYOCARDIAL INFARCTION [None]
  - MYOCARDIAL ISCHAEMIA [None]
